FAERS Safety Report 8193676-7 (Version None)
Quarter: 2012Q1

REPORT INFORMATION
  Report Type: 
  Country: None (occurrence: None)
  Receive Date: 20120308
  Receipt Date: 20120229
  Transmission Date: 20120608
  Serious: Yes (Other)
  Sender: FDA-Public Use
  Company Number: CA-JNJFOC-20120301311

PATIENT
  Sex: Female
  Weight: 97.07 kg

DRUGS (14)
  1. MYCOPHENOLATE MOFETIL (CELLCEPT) [Concomitant]
     Route: 065
  2. ALL OTHER THERAPEUTIC PRODUCTS [Concomitant]
     Route: 065
  3. PRED FORTE [Concomitant]
     Dosage: QH
     Route: 065
  4. CELEBREX [Concomitant]
     Route: 065
  5. PREMARIN [Concomitant]
     Route: 065
  6. CALCIUM WITH VITAMIN D [Concomitant]
     Indication: MEDICAL DIET
     Route: 065
  7. REACTINE [Concomitant]
     Route: 065
  8. REMICADE [Suspect]
     Indication: RHEUMATOID ARTHRITIS
     Route: 042
     Dates: start: 20080326
  9. NASONEX [Concomitant]
     Route: 065
  10. PANTOPRAZOLE SODIUM [Concomitant]
     Route: 065
  11. BRIMONIDINE TARTRATE [Concomitant]
     Dosage: QH
     Route: 065
  12. BRICANYL [Concomitant]
     Dosage: ONE OR TWO OF THE PUFFS PRN
     Route: 065
  13. FLOVENT [Concomitant]
     Dosage: PUFFS
     Route: 065
  14. ATROPINE [Concomitant]
     Dosage: HS
     Route: 065

REACTIONS (4)
  - TOOTH INFECTION [None]
  - SINUSITIS [None]
  - VITRECTOMY [None]
  - EYE OPERATION [None]
